FAERS Safety Report 10474166 (Version 1)
Quarter: 2014Q3

REPORT INFORMATION
  Report Type: Spontaneous
  Country: GR (occurrence: GR)
  Receive Date: 20140924
  Receipt Date: 20140924
  Transmission Date: 20150326
  Serious: Yes (Other)
  Sender: FDA-Public Use
  Company Number: GR-PFIZER INC-2014261701

PATIENT
  Age: 63 Year
  Sex: Female

DRUGS (6)
  1. COZAAR [Concomitant]
     Active Substance: LOSARTAN POTASSIUM
     Dosage: UNK
  2. CRESTOR [Concomitant]
     Active Substance: ROSUVASTATIN CALCIUM
     Dosage: UNK
  3. SELECTOL [Concomitant]
     Active Substance: CELIPROLOL
     Dosage: UNK
  4. NORVASC [Suspect]
     Active Substance: AMLODIPINE BESYLATE
     Dosage: 5 MG, DAILY
  5. NORVASC [Suspect]
     Active Substance: AMLODIPINE BESYLATE
     Dosage: 10 MG, UNK
  6. LYRICA [Concomitant]
     Active Substance: PREGABALIN
     Dosage: UNK

REACTIONS (12)
  - Arthralgia [Unknown]
  - Diabetes mellitus [Unknown]
  - Weight increased [Unknown]
  - Osteoporosis [Unknown]
  - Visual impairment [Unknown]
  - Gingival hyperplasia [Unknown]
  - Cerebrovascular accident [Unknown]
  - Nocturia [Unknown]
  - Tooth disorder [Unknown]
  - Thyroid disorder [Unknown]
  - Back pain [Unknown]
  - Impaired self-care [Unknown]
